FAERS Safety Report 6276280-7 (Version None)
Quarter: 2009Q3

REPORT INFORMATION
  Report Type: 
  Country: None (occurrence: None)
  Receive Date: 20090722
  Receipt Date: 20090713
  Transmission Date: 20100115
  Serious: Yes (Other)
  Sender: FDA-Public Use
  Company Number: GB-JNJFOC-20090704385

PATIENT
  Sex: Male

DRUGS (2)
  1. CONCERTA [Suspect]
     Indication: ACCIDENTAL EXPOSURE
     Route: 048
  2. PRAVASTATIN [Concomitant]
     Route: 065

REACTIONS (5)
  - ACCIDENTAL EXPOSURE [None]
  - ANXIETY [None]
  - DEPRESSION [None]
  - MEMORY IMPAIRMENT [None]
  - MENTAL DISORDER [None]
